FAERS Safety Report 11838891 (Version 1)
Quarter: 2015Q4

REPORT INFORMATION
  Report Type: Spontaneous
  Country: US (occurrence: US)
  Receive Date: 20151216
  Receipt Date: 20151216
  Transmission Date: 20160305
  Serious: No
  Sender: FDA-Public Use
  Company Number: US-HOSPIRA-2737256

PATIENT

DRUGS (2)
  1. SODIUM CHLORIDE. [Suspect]
     Active Substance: SODIUM CHLORIDE
     Indication: GASTROINTESTINAL SURGERY
     Dosage: 0.9%
     Route: 058
     Dates: start: 20150203
  2. SODIUM CHLORIDE. [Suspect]
     Active Substance: SODIUM CHLORIDE
     Indication: INJECTION
     Dosage: 0.9%
     Route: 058
     Dates: start: 20150203

REACTIONS (3)
  - Product colour issue [Recovered/Resolved]
  - Poor quality drug administered [Recovered/Resolved]
  - Mucosal discolouration [Recovered/Resolved]

NARRATIVE: CASE EVENT DATE: 20150203
